FAERS Safety Report 4446866-0 (Version None)
Quarter: 2004Q3

REPORT INFORMATION
  Report Type: 
  Country: None (occurrence: None)
  Receive Date: 20040908
  Receipt Date: 20040827
  Transmission Date: 20050211
  Serious: No
  Sender: FDA-Public Use
  Company Number: 2004228106FR

PATIENT
  Sex: 0

DRUGS (1)
  1. PROSTIN E2 [Suspect]
     Indication: UTERINE HAEMORRHAGE
     Dosage: IV
     Route: 042
     Dates: start: 20040503, end: 20040504

REACTIONS (6)
  - ACUTE PULMONARY OEDEMA [None]
  - CARDIOGENIC SHOCK [None]
  - CARDIOMYOPATHY [None]
  - CIRCULATORY COLLAPSE [None]
  - MYOCARDIAL ISCHAEMIA [None]
  - SINUS TACHYCARDIA [None]
